FAERS Safety Report 23178281 (Version 3)
Quarter: 2024Q1

REPORT INFORMATION
  Report Type: Spontaneous
  Country: SI (occurrence: SI)
  Receive Date: 20231113
  Receipt Date: 20240206
  Transmission Date: 20240410
  Serious: Yes (Hospitalization, Other)
  Sender: FDA-Public Use
  Company Number: SI-JNJFOC-20231116085

PATIENT
  Age: 68 Year
  Sex: Male
  Weight: 108 kg

DRUGS (1)
  1. STELARA [Suspect]
     Active Substance: USTEKINUMAB
     Indication: Psoriasis
     Route: 058
     Dates: start: 201103, end: 202211

REACTIONS (3)
  - Transitional cell carcinoma [Unknown]
  - Coronary artery disease [Unknown]
  - Psoriasis [Unknown]

NARRATIVE: CASE EVENT DATE: 20211001
